FAERS Safety Report 5876040-2 (Version None)
Quarter: 2008Q3

REPORT INFORMATION
  Report Type: 
  Country: None (occurrence: None)
  Receive Date: 20080910
  Receipt Date: 20080901
  Transmission Date: 20090109
  Serious: Yes (Hospitalization)
  Sender: FDA-Public Use
  Company Number: DE-AMGEN-UK305030

PATIENT
  Sex: Female

DRUGS (7)
  1. ARANESP [Suspect]
     Indication: ANAEMIA OF MALIGNANT DISEASE
     Route: 058
     Dates: start: 20070807, end: 20070807
  2. TAXOTERE [Suspect]
     Route: 042
     Dates: start: 20070807, end: 20070807
  3. ADRIAMYCIN PFS [Suspect]
     Route: 042
     Dates: start: 20070807, end: 20070807
  4. CYCLOPHOSPHAMIDE [Suspect]
     Route: 042
     Dates: start: 20070807, end: 20070807
  5. XIPAMIDE [Concomitant]
     Route: 048
  6. RAMIPRIL [Concomitant]
     Route: 048
  7. BISOPROLOL FUMARATE [Concomitant]
     Route: 048

REACTIONS (4)
  - CHILLS [None]
  - COUGH [None]
  - DYSPNOEA [None]
  - PYREXIA [None]
